FAERS Safety Report 15483636 (Version 1)
Quarter: 2018Q4

REPORT INFORMATION
  Report Type: Report from Study
  Country: None (occurrence: CA)
  Receive Date: 20181010
  Receipt Date: 20181010
  Transmission Date: 20190205
  Serious: Yes (Other)
  Sender: FDA-Public Use
  Company Number: CA-ABBVIE-18K-028-2256695-00

PATIENT
  Sex: Female

DRUGS (3)
  1. SORIATANE [Concomitant]
     Active Substance: ACITRETIN
     Indication: PSORIASIS
     Dosage: ALTERNATES 20 MG + 10 MG EVERY OTHER DAY
     Route: 048
     Dates: end: 2018
  2. SORIATANE [Concomitant]
     Active Substance: ACITRETIN
     Dosage: ALTERNATES 20 MG + 10 MG EVERY OTHER DAY
     Route: 048
     Dates: start: 20180212
  3. HUMIRA [Suspect]
     Active Substance: ADALIMUMAB
     Indication: PSORIATIC ARTHROPATHY
     Route: 058
     Dates: start: 20171114, end: 20180904

REACTIONS (5)
  - Arthralgia [Recovered/Resolved]
  - Crohn^s disease [Not Recovered/Not Resolved]
  - Psoriasis [Not Recovered/Not Resolved]
  - Systemic lupus erythematosus [Not Recovered/Not Resolved]
  - Drug effect decreased [Unknown]

NARRATIVE: CASE EVENT DATE: 2018
